FAERS Safety Report 9502609 (Version 1)
Quarter: 2013Q3

REPORT INFORMATION
  Report Type: Spontaneous
  Country: IT (occurrence: IT)
  Receive Date: 20130906
  Receipt Date: 20130906
  Transmission Date: 20140515
  Serious: Yes (Other)
  Sender: FDA-Public Use
  Company Number: IT-JNJFOC-20130815684

PATIENT
  Age: 46 Year
  Sex: Female

DRUGS (2)
  1. PALIPERIDONE [Suspect]
     Indication: SCHIZOPHRENIA, PARANOID TYPE
     Route: 048
  2. TETRABENAZINE [Suspect]
     Indication: SCHIZOPHRENIA, PARANOID TYPE
     Route: 065

REACTIONS (5)
  - Oculogyric crisis [Unknown]
  - Paroxysmal perceptual alteration [Unknown]
  - Photophobia [Unknown]
  - Anxiety [Unknown]
  - Malaise [Unknown]
